FAERS Safety Report 14145806 (Version 2)
Quarter: 2018Q1

REPORT INFORMATION
  Report Type: Report from Study
  Country: None (occurrence: CA)
  Receive Date: 20171031
  Receipt Date: 20180119
  Transmission Date: 20180508
  Serious: Yes (Hospitalization)
  Sender: FDA-Public Use
  Company Number: CA-ABBVIE-17S-028-2145263-00

PATIENT
  Sex: Male

DRUGS (3)
  1. QUETIAPINE. [Concomitant]
     Active Substance: QUETIAPINE
     Indication: OBSESSIVE-COMPULSIVE DISORDER
     Route: 048
  2. LUPRON DEPOT [Suspect]
     Active Substance: LEUPROLIDE ACETATE
     Indication: PROSTATE CANCER
     Route: 030
     Dates: start: 20150708, end: 20170925
  3. NILUTAMIDE. [Concomitant]
     Active Substance: NILUTAMIDE
     Indication: PROSTATE CANCER
     Route: 048
     Dates: start: 20141106, end: 20171031

REACTIONS (1)
  - Cardiac disorder [Unknown]
